FAERS Safety Report 24043104 (Version 1)
Quarter: 2024Q3

REPORT INFORMATION
  Report Type: Spontaneous
  Country: US (occurrence: US)
  Receive Date: 20240702
  Receipt Date: 20240702
  Transmission Date: 20241016
  Serious: Yes (Hospitalization, Other)
  Sender: MERCK
  Company Number: US-009507513-2406USA009173

PATIENT
  Age: 71 Year
  Sex: Male

DRUGS (1)
  1. KEYTRUDA [Suspect]
     Active Substance: PEMBROLIZUMAB
     Indication: Squamous cell carcinoma of lung

REACTIONS (2)
  - Immune-mediated adrenal insufficiency [Recovered/Resolved with Sequelae]
  - Immune-mediated encephalitis [Recovered/Resolved with Sequelae]
